FAERS Safety Report 5804851-8 (Version None)
Quarter: 2008Q3

REPORT INFORMATION
  Report Type: 
  Country: None (occurrence: None)
  Receive Date: 20080709
  Receipt Date: 20080701
  Transmission Date: 20090109
  Serious: Yes (Hospitalization, Other)
  Sender: FDA-Public Use
  Company Number: NZ-AVENTIS-200814755GDDC

PATIENT
  Age: 63 Year
  Sex: Female

DRUGS (16)
  1. LANTUS [Suspect]
     Route: 058
     Dates: start: 20070328
  2. AUTOPEN INSULIN INJECTION PEN [Suspect]
  3. ACETAMINOPHEN [Concomitant]
  4. LIPITOR [Concomitant]
  5. CALCIFEROL [Concomitant]
  6. OSTEO                              /00108001/ [Concomitant]
  7. FOSAMAX [Concomitant]
  8. BETALOC CR [Concomitant]
  9. OMEPRAZOLE [Concomitant]
  10. FUROSEMIDE [Concomitant]
  11. PREDNISONE TAB [Concomitant]
  12. BUDESONIDE [Concomitant]
     Dosage: DOSE QUANTITY: 2
  13. HUMALOG [Concomitant]
  14. ASPIRIN [Concomitant]
  15. VENTOLIN [Concomitant]
     Route: 055
  16. BECLOMETHASONE DIPROPIONATE [Concomitant]
     Dosage: DOSE QUANTITY: 2

REACTIONS (4)
  - CARDIAC FAILURE [None]
  - CEREBROVASCULAR ACCIDENT [None]
  - PELVIC MASS [None]
  - RENAL FAILURE [None]
